FAERS Safety Report 21604663 (Version 1)
Quarter: 2022Q4

REPORT INFORMATION
  Report Type: Spontaneous
  Country: GR (occurrence: GR)
  Receive Date: 20221116
  Receipt Date: 20221116
  Transmission Date: 20230113
  Serious: Yes (Other)
  Sender: FDA-Public Use
  Company Number: None

PATIENT
  Age: 70 Year
  Sex: Female
  Weight: 69 kg

DRUGS (4)
  1. SIMVASTATIN [Suspect]
     Active Substance: SIMVASTATIN
     Indication: Coronary artery disease
     Dosage: DURATION 5 MONTH
     Dates: start: 202003, end: 202008
  2. ROSUVASTATIN [Suspect]
     Active Substance: ROSUVASTATIN
     Indication: Coronary artery disease
     Dosage: DURATION : 8 MONTH
     Dates: start: 202102, end: 202110
  3. ATORVASTATIN [Suspect]
     Active Substance: ATORVASTATIN
     Indication: Coronary artery disease
     Dosage: DURATION : 2 MONTH
     Dates: start: 201910, end: 201912
  4. PITAVASTATIN [Suspect]
     Active Substance: PITAVASTATIN
     Indication: Coronary artery disease
     Dosage: DURATION : 2 MONTH
     Dates: start: 202012, end: 202102

REACTIONS (8)
  - Myalgia [Recovered/Resolved]
  - Myalgia [Recovered/Resolved]
  - Hypertransaminasaemia [Recovered/Resolved]
  - Myalgia [Recovered/Resolved]
  - Hypertransaminasaemia [Recovered/Resolved]
  - Hypertransaminasaemia [Recovered/Resolved]
  - Myalgia [Recovered/Resolved]
  - Hypertransaminasaemia [Recovered/Resolved]

NARRATIVE: CASE EVENT DATE: 20191001
